FAERS Safety Report 6072118-1 (Version None)
Quarter: 2009Q1

REPORT INFORMATION
  Report Type: 
  Country: None (occurrence: None)
  Receive Date: 20090210
  Receipt Date: 20090203
  Transmission Date: 20090719
  Serious: Yes (Other)
  Sender: FDA-Public Use
  Company Number: IN-ELI_LILLY_AND_COMPANY-IN200902000631

PATIENT
  Age: 53 Year
  Sex: Female

DRUGS (1)
  1. HUMALOG MIX 75/25 [Suspect]
     Indication: TYPE 2 DIABETES MELLITUS
     Dosage: 26 U, DAILY (1/D)
     Route: 058
     Dates: start: 20090116, end: 20090126

REACTIONS (2)
  - BLOOD GLUCOSE FLUCTUATION [None]
  - FEELING ABNORMAL [None]
